FAERS Safety Report 25389873 (Version 2)
Quarter: 2025Q2

REPORT INFORMATION
  Report Type: Report from Study
  Country: US (occurrence: US)
  Receive Date: 20250603
  Receipt Date: 20250625
  Transmission Date: 20250716
  Serious: Yes (Death, Other)
  Sender: ACADIA PHARMACEUTICALS
  Company Number: US-ACADIA PHARMACEUTICALS INC.-ACA-2025-PIM-006545

PATIENT
  Age: 78 Year
  Sex: Male

DRUGS (12)
  1. NUPLAZID [Suspect]
     Active Substance: PIMAVANSERIN TARTRATE
     Indication: Parkinson^s disease psychosis
     Dosage: 34 MILLIGRAM, QD
     Route: 048
     Dates: start: 20250505, end: 20250527
  2. ASPIRIN [Concomitant]
     Active Substance: ASPIRIN
  3. DIGOXIN [Concomitant]
     Active Substance: DIGOXIN
  4. FLONASE [Concomitant]
     Active Substance: FLUTICASONE PROPIONATE
  5. FUROSEMIDE [Concomitant]
     Active Substance: FUROSEMIDE
  6. HYDRALAZINE [Concomitant]
     Active Substance: HYDRALAZINE HYDROCHLORIDE
  7. LOSARTAN [Concomitant]
     Active Substance: LOSARTAN
  8. LIDOCAINE [Concomitant]
     Active Substance: LIDOCAINE
  9. PRAVASTATIN [Concomitant]
     Active Substance: PRAVASTATIN
  10. SINEMET [Concomitant]
     Active Substance: CARBIDOPA\LEVODOPA
  11. TAMSULOSIN [Concomitant]
     Active Substance: TAMSULOSIN
  12. TRAZODONE [Concomitant]
     Active Substance: TRAZODONE HYDROCHLORIDE

REACTIONS (1)
  - Death [Fatal]

NARRATIVE: CASE EVENT DATE: 20250527
